FAERS Safety Report 8826352 (Version 7)
Quarter: 2017Q1

REPORT INFORMATION
  Report Type: Spontaneous
  Country: FI (occurrence: FI)
  Receive Date: 20121005
  Receipt Date: 20170209
  Transmission Date: 20170429
  Serious: Yes (Other)
  Sender: FDA-Public Use
  Company Number: FI-ROCHE-1141707

PATIENT
  Sex: Female

DRUGS (6)
  1. BONVIVA [Suspect]
     Active Substance: IBANDRONATE SODIUM
     Indication: PRODUCT USED FOR UNKNOWN INDICATION
     Route: 065
     Dates: end: 201210
  2. SOMAC [Concomitant]
     Active Substance: PANTOPRAZOLE SODIUM
  3. ZOLT [Concomitant]
     Active Substance: LANSOPRAZOLE
  4. KALCIPOS-D FORTE [Suspect]
     Active Substance: CALCIUM CARBONATE\CHOLECALCIFEROL
     Route: 065
     Dates: start: 201301
  5. THYROXIN [Concomitant]
     Active Substance: LEVOTHYROXINE
     Indication: HYPOTHYROIDISM
     Route: 065
     Dates: start: 1976
  6. KALCIPOS-D FORTE [Suspect]
     Active Substance: CALCIUM CARBONATE\CHOLECALCIFEROL
     Indication: PRODUCT USED FOR UNKNOWN INDICATION
     Route: 065
     Dates: end: 201210

REACTIONS (9)
  - Eye infection [Recovered/Resolved]
  - Dyspnoea [Recovering/Resolving]
  - Eyelid infection [Recovered/Resolved]
  - Chalazion [Recovered/Resolved]
  - Onychoclasis [Not Recovered/Not Resolved]
  - Blepharitis [Recovered/Resolved]
  - Swelling face [Recovered/Resolved]
  - Eyelid oedema [Recovered/Resolved]
  - Hordeolum [Recovered/Resolved]

NARRATIVE: CASE EVENT DATE: 2013
